FAERS Safety Report 17477938 (Version 4)
Quarter: 2022Q3

REPORT INFORMATION
  Report Type: Spontaneous
  Country: CA (occurrence: CA)
  Receive Date: 20200229
  Receipt Date: 20220718
  Transmission Date: 20221027
  Serious: Yes (Other)
  Sender: FDA-Public Use
  Company Number: CA-SAMSUNG BIOEPIS-SB-2020-06473

PATIENT
  Age: 22 Year
  Sex: Female
  Weight: 67 kg

DRUGS (4)
  1. INFLIXIMAB [Suspect]
     Active Substance: INFLIXIMAB
     Indication: Colitis ulcerative
     Route: 042
  2. HYDROMORPHONE [Concomitant]
     Active Substance: HYDROMORPHONE
     Indication: Pain
     Dosage: AS REQUIRED
     Route: 058
  3. METHYLPREDNISOLONE [Concomitant]
     Active Substance: METHYLPREDNISOLONE
     Indication: Product used for unknown indication
     Route: 042
  4. DIPHENHYDRAMINE [Concomitant]
     Active Substance: DIPHENHYDRAMINE
     Indication: Premedication
     Route: 065

REACTIONS (12)
  - Condition aggravated [Unknown]
  - Fatigue [Unknown]
  - Feeling abnormal [Unknown]
  - Haematochezia [Unknown]
  - Migraine [Recovered/Resolved]
  - Nausea [Unknown]
  - Pyrexia [Unknown]
  - Weight increased [Unknown]
  - Blood pressure systolic increased [Unknown]
  - Therapeutic product effect incomplete [Unknown]
  - Off label use [Unknown]
  - Inappropriate schedule of product administration [Unknown]
